FAERS Safety Report 15763737 (Version 1)
Quarter: 2018Q4

REPORT INFORMATION
  Report Type: Spontaneous
  Country: GB (occurrence: GB)
  Receive Date: 20181227
  Receipt Date: 20181227
  Transmission Date: 20190205
  Serious: Yes (Other)
  Sender: FDA-Public Use
  Company Number: GB-TEVA-2018-GB-991241

PATIENT
  Age: 71 Year
  Sex: Male
  Weight: 73 kg

DRUGS (5)
  1. SINEMET [Concomitant]
     Active Substance: CARBIDOPA\LEVODOPA
     Dosage: 1 DOSAGE FORMS DAILY; 25/100 AT NIGHT
  2. ANHYDROUS CARBIDOPA [Concomitant]
     Dosage: 3 DOSAGE FORMS DAILY;
  3. TAMSULOSIN HYDROCHLORIDE. [Concomitant]
     Active Substance: TAMSULOSIN HYDROCHLORIDE
     Dosage: 1 DOSAGE FORMS DAILY;
  4. COCODAMOL [Suspect]
     Active Substance: ACETAMINOPHEN\CODEINE PHOSPHATE
     Indication: ABDOMINAL PAIN
     Dosage: 8-500 TABLETS
     Route: 048
  5. LEVODOPA [Concomitant]
     Active Substance: LEVODOPA
     Dosage: 3 DOSAGE FORMS DAILY; 25/100

REACTIONS (1)
  - Epistaxis [Recovered/Resolved]
